FAERS Safety Report 16306763 (Version 6)
Quarter: 2020Q1

REPORT INFORMATION
  Report Type: Spontaneous
  Country: FR (occurrence: FR)
  Receive Date: 20190513
  Receipt Date: 20200103
  Transmission Date: 20200409
  Serious: Yes (Death, Congenital Anomaly)
  Sender: FDA-Public Use
  Company Number: PHHY2019FR108745

PATIENT
  Sex: Male

DRUGS (1)
  1. GILENYA [Suspect]
     Active Substance: FINGOLIMOD HYDROCHLORIDE
     Indication: FOETAL EXPOSURE DURING PREGNANCY
     Dosage: MATERNAL DOSE: 1 DF, QD
     Route: 064

REACTIONS (7)
  - Cerebellar hypoplasia [Fatal]
  - Foetal exposure during pregnancy [Unknown]
  - Urinary tract malformation [Fatal]
  - Grey matter heterotopia [Unknown]
  - Brain malformation [Fatal]
  - Posterior fossa syndrome [Fatal]
  - Cerebellar dysplasia [Unknown]

NARRATIVE: CASE EVENT DATE: 20181127
